FAERS Safety Report 8865875 (Version 1)
Quarter: 2012Q4

REPORT INFORMATION
  Report Type: Report from Study
  Country: US (occurrence: US)
  Receive Date: 20121025
  Receipt Date: 20121025
  Transmission Date: 20130627
  Serious: No
  Sender: FDA-Public Use
  Company Number: US-ABBOTT-12P-163-0922049-00

PATIENT
  Sex: Female
  Weight: 54.93 kg

DRUGS (2)
  1. LUPRON DEPOT 3.75 MG [Suspect]
     Indication: ENDOMETRIOSIS
     Route: 050
     Dates: start: 201203, end: 201204
  2. PROVERA [Concomitant]
     Indication: HORMONE THERAPY
     Dates: start: 201203, end: 201203

REACTIONS (7)
  - Bone pain [Recovering/Resolving]
  - Hypoaesthesia [Recovered/Resolved]
  - Migraine [Recovered/Resolved]
  - Vomiting [Recovered/Resolved]
  - Nausea [Not Recovered/Not Resolved]
  - Headache [Not Recovered/Not Resolved]
  - Hypoaesthesia [Recovered/Resolved]
